FAERS Safety Report 9457612 (Version 2)
Quarter: 2013Q3

REPORT INFORMATION
  Report Type: Spontaneous
  Country: US (occurrence: US)
  Receive Date: 20130814
  Receipt Date: 20130823
  Transmission Date: 20140515
  Serious: No
  Sender: FDA-Public Use
  Company Number: US-PFIZER INC-2013234340

PATIENT
  Age: 68 Year
  Sex: Female

DRUGS (4)
  1. TOBRAMYCIN [Suspect]
     Dosage: UNK
  2. GENTAMICIN SULFATE [Suspect]
     Dosage: UNK
  3. TIMOPTIC [Suspect]
     Dosage: UNK
  4. VIOXX [Suspect]
     Dosage: UNK

REACTIONS (1)
  - Drug hypersensitivity [Unknown]
